FAERS Safety Report 12990800 (Version 1)
Quarter: 2016Q4

REPORT INFORMATION
  Report Type: Spontaneous
  Country: US (occurrence: US)
  Receive Date: 20161201
  Receipt Date: 20161201
  Transmission Date: 20170207
  Serious: Yes (Hospitalization)
  Sender: FDA-Public Use
  Company Number: US-FERRINGPH-2016FE06273

PATIENT

DRUGS (1)
  1. DDAVP [Suspect]
     Active Substance: DESMOPRESSIN ACETATE
     Indication: VON WILLEBRAND^S DISEASE
     Route: 045

REACTIONS (6)
  - Hallucination, visual [Recovered/Resolved]
  - Somnolence [Unknown]
  - Hyponatraemic seizure [Unknown]
  - Hyponatraemia [Recovering/Resolving]
  - Lethargy [Unknown]
  - Confusional state [Recovered/Resolved]
